FAERS Safety Report 7466759-4 (Version None)
Quarter: 2011Q2

REPORT INFORMATION
  Report Type: 
  Country: None (occurrence: None)
  Receive Date: 20110509
  Receipt Date: 20100902
  Transmission Date: 20111010
  Serious: No
  Sender: FDA-Public Use
  Company Number: US-ALEXION-A201001121

PATIENT
  Sex: Male

DRUGS (7)
  1. TYLENOL PM                         /01088101/ [Concomitant]
     Indication: SLEEP DISORDER
  2. NEUPOGEN [Concomitant]
     Dosage: UNK
  3. SOLIRIS [Suspect]
     Dosage: 900 MG, Q2W
     Route: 042
     Dates: start: 20070619
  4. MULTI-VITAMINS [Concomitant]
  5. FOLIC ACID [Concomitant]
  6. PREDNISONE [Concomitant]
     Indication: HAEMOLYSIS
     Dosage: 60 MG, PRN
  7. SOLIRIS [Suspect]
     Indication: PAROXYSMAL NOCTURNAL HAEMOGLOBINURIA
     Dosage: 600 MG, QW
     Route: 042
     Dates: start: 20070515, end: 20070601

REACTIONS (1)
  - IRON OVERLOAD [None]
